FAERS Safety Report 17060956 (Version 4)
Quarter: 2020Q1

REPORT INFORMATION
  Report Type: Spontaneous
  Country: US (occurrence: US)
  Receive Date: 20191121
  Receipt Date: 20200108
  Transmission Date: 20200409
  Serious: No
  Sender: FDA-Public Use
  Company Number: US-009507513-1911USA008123

PATIENT
  Age: 20 Year
  Sex: Female
  Weight: 52.15 kg

DRUGS (4)
  1. NUVARING [Suspect]
     Active Substance: ETHINYL ESTRADIOL\ETONOGESTREL
     Dosage: UNK
  2. NUVARING [Suspect]
     Active Substance: ETHINYL ESTRADIOL\ETONOGESTREL
     Dosage: THE RING (1DF)
     Route: 067
     Dates: start: 20191103
  3. NUVARING [Suspect]
     Active Substance: ETHINYL ESTRADIOL\ETONOGESTREL
     Indication: CONTRACEPTION
     Dosage: UNK
     Route: 067
     Dates: start: 201909, end: 2019
  4. NUVARING [Suspect]
     Active Substance: ETHINYL ESTRADIOL\ETONOGESTREL
     Dosage: UNK
     Route: 067
     Dates: start: 201910, end: 2019

REACTIONS (9)
  - Adnexa uteri pain [Unknown]
  - Dysmenorrhoea [Not Recovered/Not Resolved]
  - Fungal infection [Unknown]
  - Device expulsion [Unknown]
  - Metrorrhagia [Recovered/Resolved]
  - Muscle spasms [Unknown]
  - Amenorrhoea [Recovered/Resolved]
  - Vulvovaginal pain [Unknown]
  - Medical device site discomfort [Unknown]

NARRATIVE: CASE EVENT DATE: 2019
